FAERS Safety Report 4428741-0 (Version None)
Quarter: 2004Q3

REPORT INFORMATION
  Report Type: 
  Country: None (occurrence: None)
  Receive Date: 20040818
  Receipt Date: 20040401
  Transmission Date: 20050211
  Serious: No
  Sender: FDA-Public Use
  Company Number: US-BRISTOL-MYERS SQUIBB COMPANY-12548624

PATIENT
  Age: 33 Year
  Sex: Female
  Weight: 57 kg

DRUGS (4)
  1. TEQUIN [Suspect]
     Indication: URINARY TRACT INFECTION
     Route: 048
     Dates: start: 20040322, end: 20040328
  2. PROZAC [Concomitant]
  3. AMBIEN [Concomitant]
  4. PYRIDIUM [Concomitant]

REACTIONS (2)
  - DISTURBANCE IN ATTENTION [None]
  - DRUG SCREEN POSITIVE [None]
